FAERS Safety Report 21717764 (Version 1)
Quarter: 2022Q4

REPORT INFORMATION
  Report Type: Report from Study
  Country: IE (occurrence: IE)
  Receive Date: 20221212
  Receipt Date: 20221212
  Transmission Date: 20230113
  Serious: Yes (Hospitalization, Other)
  Sender: FDA-Public Use
  Company Number: IE-BRISTOL-MYERS SQUIBB COMPANY-2022-148722

PATIENT
  Age: 71 Year
  Sex: Male
  Weight: 83 kg

DRUGS (20)
  1. NIVOLUMAB [Suspect]
     Active Substance: NIVOLUMAB
     Indication: Non-small cell lung cancer
     Dosage: MOST RECENT DOSE WAS ON 16-FEB-2022
     Route: 042
     Dates: start: 20211130
  2. CARBOPLATIN [Suspect]
     Active Substance: CARBOPLATIN
     Indication: Non-small cell lung cancer
     Dosage: MOST RECENT DOSE (540 MG) WAS ON 16-FEB-2022
     Dates: start: 20211130
  3. PEMETREXED DISODIUM [Suspect]
     Active Substance: PEMETREXED DISODIUM
     Indication: Non-small cell lung cancer
     Dosage: MOST RECENT DOSE (750 MG) WAS ON 19-OCT-2022
     Dates: start: 20211130
  4. BETMOVATE 0.1% [Concomitant]
     Indication: Dermatitis acneiform
     Dosage: 1 UNIT NOS BD; TWICE PER DAY
     Route: 061
     Dates: start: 20220112
  5. CYCLIZINE [Concomitant]
     Active Substance: CYCLIZINE
     Indication: Product used for unknown indication
     Dosage: 3 TIMES PER DAY
     Route: 048
     Dates: start: 20211130
  6. METOCLOPRAMIDE [Concomitant]
     Active Substance: METOCLOPRAMIDE
     Indication: Product used for unknown indication
     Dosage: 3 TIMES PER DAY
     Route: 048
     Dates: start: 20211130
  7. B12 INJECTION [Concomitant]
     Indication: Product used for unknown indication
     Dosage: AS NEEDED
     Route: 058
     Dates: start: 20211123
  8. FOLIC ACID [Concomitant]
     Active Substance: FOLIC ACID
     Indication: Product used for unknown indication
     Dosage: DAILY; PER DAY
     Route: 048
     Dates: start: 20211123
  9. MOVICOL [Concomitant]
     Active Substance: POLYETHYLENE GLYCOL 3350\POTASSIUM CHLORIDE\SODIUM BICARBONATE\SODIUM CHLORIDE
     Indication: Constipation
     Dosage: 2 UNIT NOS, 3 TIMES PER DAY
     Route: 048
     Dates: start: 20220517
  10. SENNA [Concomitant]
     Active Substance: SENNA LEAF\SENNOSIDES\SENNOSIDES A AND B
     Indication: Constipation
     Dosage: 2 UINT NOS DAILY; PER DAY
     Route: 048
     Dates: start: 20220517
  11. VALSARTAN [Concomitant]
     Active Substance: VALSARTAN
     Indication: Product used for unknown indication
     Dosage: DAILY; PER DAY
     Route: 048
     Dates: start: 20220222
  12. BISOPROLOL [Concomitant]
     Active Substance: BISOPROLOL
     Indication: Product used for unknown indication
     Dosage: DAILY; PER DAY
     Route: 048
     Dates: start: 201106
  13. ALLOPURINOL [Concomitant]
     Active Substance: ALLOPURINOL
     Indication: Product used for unknown indication
     Dosage: DAILY; PER DAY
     Route: 048
     Dates: start: 2001
  14. AZARGA EYEDROP [Concomitant]
     Indication: Product used for unknown indication
     Dosage: 1 UNIT NOS BD; TWICE PER DAY
     Route: 001
     Dates: start: 2016
  15. TIMOLOL MALEATE\TRAVOPROST [Concomitant]
     Active Substance: TIMOLOL MALEATE\TRAVOPROST
     Indication: Product used for unknown indication
     Dosage: 1 UNIT NOS DAILY; PER DAY
     Route: 001
     Dates: start: 1996
  16. ASPIRIN [Concomitant]
     Active Substance: ASPIRIN
     Indication: Product used for unknown indication
     Dosage: DAILY; PER DAY
     Route: 048
     Dates: start: 20220310
  17. FUROSEMIDE [Concomitant]
     Active Substance: FUROSEMIDE
     Indication: Oedema peripheral
     Dosage: DAILY; PER DAY
     Route: 048
     Dates: start: 20220810
  18. LACTULOSE [Concomitant]
     Active Substance: LACTULOSE
     Indication: Constipation
     Dosage: 10 UNIT NOS AS NEEDED
     Route: 048
     Dates: start: 20220831
  19. EXPUTEX [Concomitant]
     Indication: Productive cough
     Dosage: 15 UNIT NOS AS NEEDED
     Route: 048
     Dates: start: 20220921
  20. MAGNESIUM [Concomitant]
     Active Substance: MAGNESIUM
     Indication: Hypomagnesaemia
     Dosage: 3 TIMES PER DAY
     Route: 048
     Dates: start: 20220921

REACTIONS (1)
  - Pneumonia [Not Recovered/Not Resolved]

NARRATIVE: CASE EVENT DATE: 20221203
